FAERS Safety Report 10196898 (Version 1)
Quarter: 2014Q2

REPORT INFORMATION
  Report Type: Spontaneous
  Country: US (occurrence: None)
  Receive Date: 20140523
  Receipt Date: 20140523
  Transmission Date: 20141212
  Serious: Yes (Hospitalization)
  Sender: FDA-Public Use
  Company Number: None

PATIENT
  Age: 65 Year
  Sex: Female
  Weight: 52 kg

DRUGS (5)
  1. CYCLOPHOSPHAMIDE [Suspect]
     Dates: end: 20140502
  2. DOXORUBICIN HYDROCHLORIDE [Suspect]
     Dates: end: 20140502
  3. PREDNISONE [Suspect]
     Dates: end: 20140506
  4. RITUXIMAB (MOAB C2B8 ANTI CD20, CHIMERIC) [Suspect]
     Dates: end: 20140502
  5. VINCRISTINE SULFATE [Suspect]
     Dates: end: 20140502

REACTIONS (4)
  - Chest pain [None]
  - Musculoskeletal pain [None]
  - Pneumonia [None]
  - Lung infiltration [None]
